FAERS Safety Report 4492734-8 (Version None)
Quarter: 2004Q4

REPORT INFORMATION
  Report Type: 
  Country: None (occurrence: None)
  Receive Date: 20041104
  Receipt Date: 20041028
  Transmission Date: 20050328
  Serious: Yes (Other)
  Sender: FDA-Public Use
  Company Number: US-AMGEN-US097539

PATIENT
  Age: 70 Year
  Sex: Female

DRUGS (2)
  1. EPOGEN [Suspect]
     Indication: ANAEMIA OF MALIGNANT DISEASE
  2. GEMZAR [Suspect]

REACTIONS (2)
  - HAEMOLYTIC URAEMIC SYNDROME [None]
  - PANCYTOPENIA [None]
